FAERS Safety Report 7623131-1 (Version None)
Quarter: 2011Q3

REPORT INFORMATION
  Report Type: 
  Country: None (occurrence: None)
  Receive Date: 20110720
  Receipt Date: 20110706
  Transmission Date: 20111222
  Serious: Yes (Other)
  Sender: FDA-Public Use
  Company Number: PHHY2011US60814

PATIENT
  Sex: Female

DRUGS (4)
  1. CALCIUM CARBONATE [Concomitant]
  2. VITAMIN D [Concomitant]
  3. FOSAMAX [Suspect]
  4. RECLAST [Suspect]
     Route: 042

REACTIONS (3)
  - DYSPEPSIA [None]
  - LIMB DISCOMFORT [None]
  - BONE FISSURE [None]
